FAERS Safety Report 16367651 (Version 1)
Quarter: 2019Q2

REPORT INFORMATION
  Report Type: Spontaneous
  Country: CN (occurrence: CN)
  Receive Date: 20190529
  Receipt Date: 20190529
  Transmission Date: 20190711
  Serious: Yes (Life-Threatening, Other)
  Sender: FDA-Public Use
  Company Number: CN-ELI_LILLY_AND_COMPANY-CN201905013215

PATIENT
  Age: 38 Year
  Sex: Male

DRUGS (6)
  1. DOCETAXEL. [Concomitant]
     Active Substance: DOCETAXEL
     Indication: LUNG CANCER METASTATIC
     Dosage: UNK, UNKNOWN
     Route: 065
     Dates: start: 201312
  2. GEMCITABINE HYDROCHLORIDE. [Suspect]
     Active Substance: GEMCITABINE HYDROCHLORIDE
     Indication: FIBROSARCOMA
  3. DOCETAXEL. [Concomitant]
     Active Substance: DOCETAXEL
     Indication: FIBROSARCOMA
  4. GEMCITABINE HYDROCHLORIDE. [Suspect]
     Active Substance: GEMCITABINE HYDROCHLORIDE
     Indication: LUNG CANCER METASTATIC
     Dosage: UNK UNK, UNKNOWN
     Route: 065
     Dates: start: 201312
  5. DOCETAXEL. [Concomitant]
     Active Substance: DOCETAXEL
     Indication: METASTASES TO GASTROINTESTINAL TRACT
  6. GEMCITABINE HYDROCHLORIDE. [Suspect]
     Active Substance: GEMCITABINE HYDROCHLORIDE
     Indication: METASTASES TO GASTROINTESTINAL TRACT

REACTIONS (3)
  - Off label use [Unknown]
  - Bone marrow failure [Unknown]
  - Thrombocytopenia [Unknown]
